FAERS Safety Report 8227137-3 (Version None)
Quarter: 2012Q1

REPORT INFORMATION
  Report Type: 
  Country: None (occurrence: None)
  Receive Date: 20120322
  Receipt Date: 20120309
  Transmission Date: 20120608
  Serious: Yes (Other)
  Sender: FDA-Public Use
  Company Number: US-PFIZER INC-2012069728

PATIENT
  Sex: Female

DRUGS (1)
  1. MOTRIN IB [Suspect]
     Route: 048
     Dates: start: 20120305

REACTIONS (1)
  - HAEMATURIA [None]
